FAERS Safety Report 22249928 (Version 1)
Quarter: 2023Q2

REPORT INFORMATION
  Report Type: Spontaneous
  Country: FR (occurrence: FR)
  Receive Date: 20230425
  Receipt Date: 20230425
  Transmission Date: 20230721
  Serious: Yes (Other)
  Sender: FDA-Public Use
  Company Number: None

PATIENT
  Age: 58 Year
  Sex: Female

DRUGS (3)
  1. VALIUM [Suspect]
     Active Substance: DIAZEPAM
     Indication: Product used for unknown indication
     Dosage: 12 CP DOSAGE NOT GIVEN
     Route: 050
     Dates: start: 20230402, end: 20230402
  2. ALCOHOL [Suspect]
     Active Substance: ALCOHOL
     Indication: Product used for unknown indication
     Dosage: UP TO 1 BOTTLE OF VODKA 70CL/DAY
     Route: 050
     Dates: start: 1983
  3. NICOTINE\TOBACCO LEAF [Suspect]
     Active Substance: NICOTINE\TOBACCO LEAF
     Indication: Product used for unknown indication
     Dosage: 20 CIG/JOUR
     Route: 050
     Dates: start: 1983

REACTIONS (3)
  - Intentional product misuse [Recovered/Resolved]
  - Toxicity to various agents [Recovered/Resolved]
  - Substance abuse [Not Recovered/Not Resolved]

NARRATIVE: CASE EVENT DATE: 20230402
